FAERS Safety Report 25852807 (Version 2)
Quarter: 2025Q4

REPORT INFORMATION
  Report Type: Report from Study
  Country: US (occurrence: US)
  Receive Date: 20250926
  Receipt Date: 20251006
  Transmission Date: 20260118
  Serious: No
  Sender: AGIOS PHARMACEUTICALS
  Company Number: US-AGIOS-2509US04479

PATIENT
  Sex: Female

DRUGS (2)
  1. MITAPIVAT [Suspect]
     Active Substance: MITAPIVAT
     Indication: Pyruvate kinase deficiency anaemia
     Dosage: 50 MILLIGRAM, BID
     Route: 048
     Dates: start: 20230805
  2. EXJADE [Concomitant]
     Active Substance: DEFERASIROX
     Indication: Iron overload
     Dosage: 1500 MILLIGRAM

REACTIONS (2)
  - Serum ferritin increased [Unknown]
  - Haemoglobin decreased [Unknown]
